FAERS Safety Report 21926531 (Version 1)
Quarter: 2023Q1

REPORT INFORMATION
  Report Type: Spontaneous
  Country: KW (occurrence: KW)
  Receive Date: 20230130
  Receipt Date: 20230130
  Transmission Date: 20230418
  Serious: Yes (Death, Other)
  Sender: FDA-Public Use
  Company Number: KW-PFIZER INC-PV202300014391

PATIENT
  Age: 39 Year
  Sex: Male

DRUGS (2)
  1. HYDROCORTISONE SODIUM SUCCINATE [Suspect]
     Active Substance: HYDROCORTISONE SODIUM SUCCINATE
     Indication: Acute lymphocytic leukaemia
     Dosage: 400 MG (BOLUS)
     Route: 042
  2. SODIUM BICARBONATE [Concomitant]
     Active Substance: SODIUM BICARBONATE
     Indication: Acute lymphocytic leukaemia
     Dosage: UNK (INFUSION)

REACTIONS (2)
  - Off label use [Fatal]
  - Tumour lysis syndrome [Fatal]
